FAERS Safety Report 9731747 (Version 1)
Quarter: 2013Q4

REPORT INFORMATION
  Report Type: Spontaneous
  Country: US (occurrence: US)
  Receive Date: 20131205
  Receipt Date: 20131205
  Transmission Date: 20140711
  Serious: No
  Sender: FDA-Public Use
  Company Number: US-B.I. PHARMACEUTICALS,INC./RIDGEFIELD-2013-BI-38997BP

PATIENT
  Age: 69 Year
  Sex: Female
  Weight: 79 kg

DRUGS (15)
  1. MICARDIS HCT [Suspect]
     Indication: CARDIAC DISORDER
     Dosage: STRENGTH: 40 MG / 12.5 MG; DAILY DOSE: 40MG/12.5 MG
     Route: 048
     Dates: start: 201101
  2. METHIMAZOLE [Concomitant]
     Indication: HYPERTHYROIDISM
     Dosage: 0.5 MG
     Route: 048
     Dates: start: 1999
  3. CRESTOR [Concomitant]
     Indication: BLOOD CHOLESTEROL INCREASED
     Dosage: 20 MG
     Route: 048
     Dates: start: 201101
  4. GARLIC [Concomitant]
     Dosage: 1000 MG
  5. COREG [Concomitant]
     Indication: CARDIAC DISORDER
     Dosage: 25 MG
     Route: 048
     Dates: start: 201101
  6. ASPIRIN [Concomitant]
     Indication: CARDIOVASCULAR EVENT PROPHYLAXIS
     Dosage: 81 MG
     Route: 048
  7. COENZYME Q10 [Concomitant]
     Indication: BLOOD CHOLESTEROL INCREASED
     Dosage: 20 MG
     Route: 048
     Dates: start: 201101
  8. LEVEMIR FLEXPEN [Concomitant]
     Indication: DIABETES MELLITUS
     Dosage: 50 U
     Route: 058
  9. NOVOLOG FLEX PEN [Concomitant]
     Indication: DIABETES MELLITUS
     Route: 058
  10. OMEPRAZOLE [Concomitant]
     Indication: GASTROOESOPHAGEAL REFLUX DISEASE
     Dosage: 20 MG
     Route: 048
  11. VITAMIN C [Concomitant]
     Dosage: 500 NR
  12. GLYBURIDE [Concomitant]
     Indication: DIABETES MELLITUS
     Dosage: 20 MG
     Route: 048
     Dates: start: 2013
  13. MUTIVITAMIN [Concomitant]
  14. CALCIUM/ VITAMIN D [Concomitant]
     Dosage: 600 MG
  15. FISH OIL [Concomitant]
     Dosage: 1000 MG

REACTIONS (5)
  - Fall [Recovered/Resolved]
  - Upper limb fracture [Not Recovered/Not Resolved]
  - Concussion [Not Recovered/Not Resolved]
  - Facial bones fracture [Not Recovered/Not Resolved]
  - Off label use [Not Recovered/Not Resolved]
